FAERS Safety Report 5339914-7 (Version None)
Quarter: 2007Q2

REPORT INFORMATION
  Report Type: 
  Country: None (occurrence: None)
  Receive Date: 20070529
  Receipt Date: 20070514
  Transmission Date: 20071010
  Serious: Yes (Other)
  Sender: FDA-Public Use
  Company Number: 2006RR-04466

PATIENT
  Age: 64 Year
  Sex: Male

DRUGS (5)
  1. SIMVASTATIN [Suspect]
     Indication: LIPID METABOLISM DISORDER
     Dosage: SEE IMAGE
  2. VENLAFAXINE HCL [Concomitant]
  3. QUETIAPINE FUMARATE [Concomitant]
  4. TERAZOSIN HCL [Concomitant]
  5. CARBAMAZEPINE [Concomitant]

REACTIONS (5)
  - ACTIVITIES OF DAILY LIVING IMPAIRED [None]
  - COGNITIVE DISORDER [None]
  - DISTURBANCE IN ATTENTION [None]
  - MEMORY IMPAIRMENT [None]
  - MINI MENTAL STATUS EXAMINATION ABNORMAL [None]
